FAERS Safety Report 9827798 (Version 2)
Quarter: 2014Q1

REPORT INFORMATION
  Report Type: Spontaneous
  Country: MX (occurrence: MX)
  Receive Date: 20140117
  Receipt Date: 20140131
  Transmission Date: 20141002
  Serious: Yes (Hospitalization)
  Sender: FDA-Public Use
  Company Number: MX-BRISTOL-MYERS SQUIBB COMPANY-20007175

PATIENT
  Age: 69 Year
  Sex: Male

DRUGS (3)
  1. BELATACEPT [Suspect]
     Indication: IMMUNOSUPPRESSION
     Route: 042
     Dates: start: 20080327
  2. PREDNISONE [Suspect]
     Indication: IMMUNOSUPPRESSION
     Route: 048
     Dates: start: 2008
  3. CELLCEPT [Suspect]
     Indication: IMMUNOSUPPRESSION
     Dates: start: 2008

REACTIONS (1)
  - Gastroenteritis [Recovered/Resolved]
